FAERS Safety Report 6770502-1 (Version None)
Quarter: 2010Q2

REPORT INFORMATION
  Report Type: 
  Country: None (occurrence: None)
  Receive Date: 20100615
  Receipt Date: 20100601
  Transmission Date: 20101027
  Serious: Yes (Hospitalization, Other)
  Sender: FDA-Public Use
  Company Number: PL-MEDIMMUNE-MEDI-0011282

PATIENT
  Sex: Female
  Weight: 5.6 kg

DRUGS (2)
  1. SYNAGIS [Suspect]
     Indication: BRONCHOPULMONARY DYSPLASIA
     Route: 030
     Dates: start: 20100322, end: 20100322
  2. SYNAGIS [Suspect]
     Route: 030
     Dates: start: 20100424, end: 20100424

REACTIONS (5)
  - BRONCHITIS [None]
  - DIARRHOEA [None]
  - LOWER RESPIRATORY TRACT INFECTION [None]
  - NECROTISING COLITIS [None]
  - VOMITING [None]
